FAERS Safety Report 4558790-3 (Version None)
Quarter: 2005Q1

REPORT INFORMATION
  Report Type: 
  Country: None (occurrence: None)
  Receive Date: 20050121
  Receipt Date: 20041021
  Transmission Date: 20050727
  Serious: Yes (Other)
  Sender: FDA-Public Use
  Company Number: ZA-GLAXOSMITHKLINE-B0349060A

PATIENT
  Age: 36 Year
  Sex: Male
  Weight: 96 kg

DRUGS (2)
  1. LAMICTAL [Suspect]
     Dosage: 100MG PER DAY
     Route: 048
     Dates: start: 20040907, end: 20041104
  2. ESCITALOPRAM [Concomitant]
     Indication: DRUG USE FOR UNKNOWN INDICATION
     Dosage: 10MG PER DAY
     Dates: start: 20040901

REACTIONS (6)
  - ECCHYMOSIS [None]
  - ERYTHEMA MULTIFORME [None]
  - HAEMATURIA [None]
  - RASH [None]
  - SUBCUTANEOUS NODULE [None]
  - URTICARIA [None]
